FAERS Safety Report 5238616-5 (Version None)
Quarter: 2007Q1

REPORT INFORMATION
  Report Type: 
  Country: None (occurrence: None)
  Receive Date: 20070215
  Receipt Date: 20070206
  Transmission Date: 20070707
  Serious: Yes (Death)
  Sender: FDA-Public Use
  Company Number: CA-ELI_LILLY_AND_COMPANY-CA200702001335

PATIENT
  Age: 14 Year
  Sex: Female

DRUGS (1)
  1. PROZAC [Suspect]

REACTIONS (2)
  - ASPHYXIA [None]
  - COMPLETED SUICIDE [None]
